FAERS Safety Report 11276679 (Version 1)
Quarter: 2015Q3

REPORT INFORMATION
  Report Type: Report from Study
  Country: DE (occurrence: DE)
  Receive Date: 20150716
  Receipt Date: 20150716
  Transmission Date: 20151125
  Serious: Yes (Hospitalization)
  Sender: FDA-Public Use
  Company Number: DE-ABBVIE-15P-062-1426253-00

PATIENT
  Sex: Male

DRUGS (1)
  1. DUODOPA [Suspect]
     Active Substance: CARBIDOPA\LEVODOPA
     Indication: PARKINSON^S DISEASE
     Dosage: MD 7.5ML, CRD 4.2ML/H, ED 1.5ML
     Route: 050
     Dates: start: 20141119

REACTIONS (2)
  - Urinary tract infection [Recovered/Resolved]
  - Device occlusion [Unknown]
